FAERS Safety Report 4894925-0 (Version None)
Quarter: 2006Q1

REPORT INFORMATION
  Report Type: 
  Country: None (occurrence: None)
  Receive Date: 20060130
  Receipt Date: 20050316
  Transmission Date: 20060701
  Serious: No
  Sender: FDA-Public Use
  Company Number: US-BRISTOL-MYERS SQUIBB COMPANY-12899936

PATIENT
  Age: 60 Year
  Sex: Female
  Weight: 77 kg

DRUGS (3)
  1. GLUCOPHAGE [Suspect]
     Route: 048
     Dates: start: 20000101
  2. LEVOTHYROXINE SODIUM [Concomitant]
  3. ALBUTEROL SULFATE AUTOHALER [Concomitant]

REACTIONS (1)
  - BLOOD GLUCOSE DECREASED [None]
